FAERS Safety Report 15601369 (Version 2)
Quarter: 2021Q2

REPORT INFORMATION
  Report Type: Spontaneous
  Country: US (occurrence: US)
  Receive Date: 20181109
  Receipt Date: 20210518
  Transmission Date: 20210716
  Serious: Yes (Disabling)
  Sender: FDA-Public Use
  Company Number: US-TEVA-2018-US-973683

PATIENT
  Age: 50 Year
  Sex: Female

DRUGS (12)
  1. DOCETAXEL?SAGENT [Suspect]
     Active Substance: DOCETAXEL
     Indication: BREAST CANCER FEMALE
     Dosage: DOSE: 132 MILLIGRAMS, NUMBER OF CYCLE?06, FREQUENCY?EVERY THREE WEEKS
     Route: 042
     Dates: start: 20140721, end: 20140721
  2. DOXORUBICIN [Concomitant]
     Active Substance: DOXORUBICIN
     Indication: BREAST CANCER FEMALE
     Dosage: DOSE: 87.6 MILLIGRAMS, NUMBER OF CYCLE ?06, FREQUENCY ? EVERY THREE WEEKS
     Route: 042
     Dates: start: 20140519, end: 20140902
  3. EMEND [Concomitant]
     Active Substance: APREPITANT
     Dosage: FREQUENCY: ONCE
     Route: 042
     Dates: start: 20140519, end: 20140902
  4. DOXORUBICIN?PFIZER [Concomitant]
     Indication: BREAST CANCER FEMALE
     Dosage: DOSE: 87.6 MILLIGRAMS AND DOSE: 80 MG, NUMBER OF CYCLE ?06, FREQUENCY ? EVERY THREE WEEKS
     Route: 042
     Dates: start: 20140519, end: 20140902
  5. LORAZEPAM. [Concomitant]
     Active Substance: LORAZEPAM
     Dosage: FREQUENCY: PRN
     Route: 048
     Dates: start: 20140721, end: 20140902
  6. ONDANSETRON [Concomitant]
     Active Substance: ONDANSETRON
     Dosage: FREQUENCY: ONCE
     Route: 042
     Dates: start: 20140519, end: 20140902
  7. LIDOCAINE TRANSPARENT DRESSING (LMX) [Concomitant]
     Dosage: FREQUENCY: PRN
     Route: 061
     Dates: start: 20140519, end: 20140902
  8. DOCETAXEL?SAGENT [Suspect]
     Active Substance: DOCETAXEL
     Dosage: DOSE: 132 MILLIGRAMS, NUMBER OF CYCLE?06, FREQUENCY?EVERY THREE WEEKS
     Route: 042
     Dates: start: 20140811, end: 20140811
  9. HEPARIN, PORCINE (PF) [Concomitant]
     Dosage: 100 UNIT/ML FLUSH 5 ML, PRN
     Route: 042
     Dates: start: 20140519, end: 20140902
  10. DOCETAXEL?SAGENT [Suspect]
     Active Substance: DOCETAXEL
     Dosage: DOSE: 132 MILLIGRAMS, NUMBER OF CYCLE?06, FREQUENCY?EVERY THREE WEEKS
     Route: 042
     Dates: start: 20140902, end: 20140902
  11. CYCLOPHOSPHAMIDE. [Concomitant]
     Active Substance: CYCLOPHOSPHAMIDE
     Indication: BREAST CANCER FEMALE
     Dosage: DOSE: 875 MILLIGRAMS, NUMBER OF CYCLE ?06, FREQUENCY?EVERY THREE WEEKS
     Route: 042
     Dates: start: 20140519, end: 20140902
  12. DEXAMETHASONE SODIUM PHOSPHATE. [Concomitant]
     Active Substance: DEXAMETHASONE SODIUM PHOSPHATE
     Dosage: FREQUENCY: ONCE
     Route: 042
     Dates: start: 20140519, end: 20140902

REACTIONS (4)
  - Hair colour changes [Not Recovered/Not Resolved]
  - Alopecia areata [Not Recovered/Not Resolved]
  - Madarosis [Not Recovered/Not Resolved]
  - Hair texture abnormal [Not Recovered/Not Resolved]

NARRATIVE: CASE EVENT DATE: 20140601
